FAERS Safety Report 9157637 (Version 1)
Quarter: 2013Q1

REPORT INFORMATION
  Report Type: Spontaneous
  Country: PT (occurrence: None)
  Receive Date: 20130212
  Receipt Date: 20130212
  Transmission Date: 20140127
  Serious: Yes (Life-Threatening)
  Sender: FDA-Public Use
  Company Number: 1595681

PATIENT
  Age: 43 Year
  Sex: Female
  Weight: 73 kg

DRUGS (10)
  1. DOCETAXEL [Suspect]
     Indication: BREAST CANCER
     Route: 041
     Dates: start: 20121129
  2. ENDOXAN [Suspect]
     Indication: BREAST CANCER
     Dosage: CYCLICAL
     Route: 042
     Dates: start: 20121129
  3. BUCLIZINE [Concomitant]
  4. CODEINE SULFATE [Concomitant]
  5. PARACETAMOL [Concomitant]
  6. RANITIDINE [Concomitant]
  7. PREDNISOLONE [Concomitant]
  8. ONDANSETRON [Concomitant]
  9. TAMOXIFEN [Concomitant]
  10. SODIUM CHLORIDE [Concomitant]

REACTIONS (6)
  - Cough [None]
  - Throat irritation [None]
  - Lacrimation increased [None]
  - Dyspnoea [None]
  - Pharyngeal erythema [None]
  - Hypersensitivity [None]
